FAERS Safety Report 25689491 (Version 2)
Quarter: 2025Q3

REPORT INFORMATION
  Report Type: Spontaneous
  Country: US (occurrence: US)
  Receive Date: 20250818
  Receipt Date: 20250826
  Transmission Date: 20251020
  Serious: Yes (Hospitalization)
  Sender: DR REDDYS
  Company Number: None

PATIENT
  Age: 86 Year
  Sex: Male

DRUGS (4)
  1. CAPECITABINE [Suspect]
     Active Substance: CAPECITABINE
     Indication: Adenosquamous cell carcinoma
     Dosage: 1000 MG/M2 DAILY FOR 14 DAYS (TOTAL DOSE 1500 MG/D)?SUSPECT START DATE: MAR-2023
     Route: 048
     Dates: end: 2023
  2. CAPECITABINE [Suspect]
     Active Substance: CAPECITABINE
     Indication: Skin squamous cell carcinoma metastatic
  3. XELODA [Suspect]
     Active Substance: CAPECITABINE
     Indication: Adenosquamous cell carcinoma
     Dosage: 1000 MG/M2 DAILY FOR 14 DAYS (TOTAL DOSE 1500 MG/D)?SUSPECT START DATE: MAR-2023
     Route: 048
     Dates: end: 2023
  4. XELODA [Suspect]
     Active Substance: CAPECITABINE
     Indication: Skin squamous cell carcinoma metastatic

REACTIONS (6)
  - Pyrexia [Recovered/Resolved]
  - Chills [Recovered/Resolved]
  - Nausea [Recovered/Resolved]
  - Vomiting [Recovered/Resolved]
  - Diarrhoea [Recovered/Resolved]
  - Neutropenia [Recovered/Resolved]

NARRATIVE: CASE EVENT DATE: 20230101
